FAERS Safety Report 4489768-6 (Version None)
Quarter: 2004Q4

REPORT INFORMATION
  Report Type: 
  Country: None (occurrence: None)
  Receive Date: 20041026
  Receipt Date: 20041005
  Transmission Date: 20050328
  Serious: No
  Sender: FDA-Public Use
  Company Number: MEDI-0002231

PATIENT
  Age: 46 Year
  Sex: Male
  Weight: 67 kg

DRUGS (4)
  1. ETHYOL [Suspect]
     Indication: RADIOTHERAPY
     Dosage: 200 MG/M2, INTRAVENOUS
     Route: 042
     Dates: start: 20040212, end: 20040501
  2. RADIATION THERAPY [Concomitant]
  3. CARBOPLATIN [Concomitant]
  4. FLUOROURACIL [Concomitant]

REACTIONS (5)
  - DERMATITIS [None]
  - LHERMITTE'S SIGN [None]
  - MUCOSAL INFLAMMATION [None]
  - NAUSEA [None]
  - NERVOUS SYSTEM DISORDER [None]
